FAERS Safety Report 7902850-3 (Version None)
Quarter: 2011Q4

REPORT INFORMATION
  Report Type: 
  Country: None (occurrence: None)
  Receive Date: 20111104
  Receipt Date: 20111028
  Transmission Date: 20120403
  Serious: Yes (Other)
  Sender: FDA-Public Use
  Company Number: 2011SP049100

PATIENT
  Age: 3 Year
  Sex: Female
  Weight: 14 kg

DRUGS (4)
  1. CLEMASTINE FUMARATE [Suspect]
     Indication: NASOPHARYNGITIS
     Dosage: 0.1 MG;TID;PO
     Route: 048
     Dates: start: 20111014, end: 20111015
  2. MUCODYNE (CARBOCISTEINE) [Suspect]
     Indication: NASOPHARYNGITIS
     Dosage: 0.3 GM;TID;PO
     Route: 048
     Dates: start: 20111014, end: 20111015
  3. CLARITIN [Suspect]
     Indication: RHINITIS ALLERGIC
     Dosage: QD;PO
     Route: 048
     Dates: start: 20111014, end: 20111016
  4. CLARITIN [Suspect]
     Indication: ACUTE SINUSITIS
     Dosage: QD;PO
     Route: 048
     Dates: start: 20111014, end: 20111016

REACTIONS (4)
  - OEDEMA PERIPHERAL [None]
  - LOCALISED OEDEMA [None]
  - THIRST [None]
  - FACE OEDEMA [None]
